FAERS Safety Report 6044208-0 (Version None)
Quarter: 2009Q1

REPORT INFORMATION
  Report Type: 
  Country: None (occurrence: None)
  Receive Date: 20090115
  Receipt Date: 20090115
  Transmission Date: 20090719
  Serious: No
  Sender: FDA-Public Use
  Company Number: None

PATIENT
  Sex: Female

DRUGS (7)
  1. AREDIA [Suspect]
     Indication: BREAST CANCER
     Dosage: 90 MG MONTHLY IV
     Route: 042
     Dates: start: 19990101, end: 20020101
  2. ZOMETA [Suspect]
     Indication: BREAST CANCER
     Dosage: 4 MG MONTHLY IV
     Route: 042
     Dates: start: 20020201, end: 20030501
  3. PREDNISONE [Concomitant]
  4. PLAQUENIL [Concomitant]
  5. COREG [Concomitant]
  6. POLYGAM S/D [Concomitant]
  7. DONNATEL [Concomitant]

REACTIONS (2)
  - BONE DISORDER [None]
  - JAW DISORDER [None]
